FAERS Safety Report 13081602 (Version 2)
Quarter: 2019Q4

REPORT INFORMATION
  Report Type: Spontaneous
  Country: US (occurrence: US)
  Receive Date: 20170103
  Receipt Date: 20191223
  Transmission Date: 20200122
  Serious: Yes (Other)
  Sender: FDA-Public Use
  Company Number: US-PFIZER INC-2016594776

PATIENT
  Age: 57 Year
  Sex: Male
  Weight: 61.23 kg

DRUGS (2)
  1. LYRICA [Suspect]
     Active Substance: PREGABALIN
     Indication: NEURALGIA
     Dosage: 200 MG, 2X/DAY
     Route: 048
     Dates: start: 20190626
  2. LYRICA [Suspect]
     Active Substance: PREGABALIN
     Indication: BACK PAIN

REACTIONS (7)
  - Pain [Not Recovered/Not Resolved]
  - Neuropathy peripheral [Unknown]
  - Tendon disorder [Unknown]
  - Neck pain [Unknown]
  - Gastrooesophageal reflux disease [Unknown]
  - Nicotine dependence [Unknown]
  - Vitamin D deficiency [Unknown]
